FAERS Safety Report 18550902 (Version 1)
Quarter: 2020Q4

REPORT INFORMATION
  Report Type: Spontaneous
  Country: US (occurrence: US)
  Receive Date: 20201126
  Receipt Date: 20201126
  Transmission Date: 20210114
  Serious: Yes (Death, Hospitalization, Other)
  Sender: FDA-Public Use
  Company Number: US-JNJFOC-20201141313

PATIENT
  Age: 54 Year
  Sex: Male

DRUGS (19)
  1. UPTRAVI [Suspect]
     Active Substance: SELEXIPAG
     Indication: PULMONARY HYPERTENSION
     Route: 065
  2. FUROSEMIDE. [Concomitant]
     Active Substance: FUROSEMIDE
     Indication: CARDIAC FAILURE CONGESTIVE
     Dates: start: 2012
  3. METOPROLOL. [Concomitant]
     Active Substance: METOPROLOL
     Indication: ATRIAL FIBRILLATION
  4. LYRICA [Concomitant]
     Active Substance: PREGABALIN
  5. METOLAZONE. [Concomitant]
     Active Substance: METOLAZONE
  6. BUMETANIDE. [Concomitant]
     Active Substance: BUMETANIDE
  7. SYNTHROID [Concomitant]
     Active Substance: LEVOTHYROXINE SODIUM
  8. OPSUMIT [Suspect]
     Active Substance: MACITENTAN
     Indication: PULMONARY HYPERTENSION
     Route: 065
  9. POTASSIUM CHLORIDE. [Concomitant]
     Active Substance: POTASSIUM CHLORIDE
  10. ACETYLSALICYLIC ACID [Concomitant]
     Active Substance: ASPIRIN
  11. ADEMPAS [Concomitant]
     Active Substance: RIOCIGUAT
  12. MIDODRINE [Concomitant]
     Active Substance: MIDODRINE
  13. ALBUTEROL [SALBUTAMOL] [Concomitant]
     Active Substance: ALBUTEROL
  14. LEVOTHYROXINE. [Concomitant]
     Active Substance: LEVOTHYROXINE
  15. VYNDAMAX [Suspect]
     Active Substance: TAFAMIDIS
     Indication: CARDIAC AMYLOIDOSIS
     Dates: start: 202007
  16. METOPROLOL. [Concomitant]
     Active Substance: METOPROLOL
  17. ELIQUIS [Concomitant]
     Active Substance: APIXABAN
  18. LASIX [Concomitant]
     Active Substance: FUROSEMIDE
  19. OXYCODONE [Concomitant]
     Active Substance: OXYCODONE

REACTIONS (14)
  - Acute kidney injury [Fatal]
  - Staphylococcal bacteraemia [Unknown]
  - Pulmonary arterial hypertension [Unknown]
  - Decreased appetite [Unknown]
  - Nausea [Unknown]
  - Incarcerated inguinal hernia [Unknown]
  - Cardiac failure congestive [Fatal]
  - Hospitalisation [Unknown]
  - Endocarditis [Unknown]
  - Cellulitis [Unknown]
  - Anaemia [Unknown]
  - Gastrooesophageal reflux disease [Unknown]
  - Chest pain [Unknown]
  - Atrioventricular block complete [Unknown]

NARRATIVE: CASE EVENT DATE: 20160926
